FAERS Safety Report 5523611-9 (Version None)
Quarter: 2007Q4

REPORT INFORMATION
  Report Type: 
  Country: None (occurrence: None)
  Receive Date: 20071121
  Receipt Date: 20071116
  Transmission Date: 20080405
  Serious: Yes (Hospitalization)
  Sender: FDA-Public Use
  Company Number: US-SANOFI-SYNTHELABO-A01200712988

PATIENT
  Age: 52 Year
  Sex: Male

DRUGS (5)
  1. FOLINIC ACID [Concomitant]
     Dosage: UNK
  2. FLUOROURACIL [Suspect]
     Dosage: UNK
     Route: 042
     Dates: start: 20070917, end: 20070917
  3. FOLINIC ACID [Suspect]
     Dosage: UNK
     Route: 042
  4. AVASTIN [Suspect]
     Dosage: UNK
     Route: 042
     Dates: start: 20070917, end: 20070917
  5. OXALIPLATIN [Suspect]
     Indication: RECTAL CANCER
     Route: 042
     Dates: start: 20070917, end: 20070917

REACTIONS (1)
  - MYOCARDIAL INFARCTION [None]
